FAERS Safety Report 17461387 (Version 1)
Quarter: 2020Q1

REPORT INFORMATION
  Report Type: Spontaneous
  Country: US (occurrence: US)
  Receive Date: 20200226
  Receipt Date: 20200226
  Transmission Date: 20200409
  Serious: Yes (Other)
  Sender: FDA-Public Use
  Company Number: US-TEVA-2020-US-1190187

PATIENT

DRUGS (3)
  1. CALCIUM SULFATE [Concomitant]
     Active Substance: CALCIUM SULFATE
     Dosage: TOBRAMYCIN IMPLANT LOADED IN POLYMETHYL METHACRYLATE CEMENT AND CALCIUM SULFATE BEADS
     Route: 065
  2. POLYMETHYLMETHACRYLATE [Concomitant]
     Dosage: TOBRAMYCIN IMPLANT LOADED IN POLYMETHYL METHACRYLATE CEMENT AND CALCIUM SULFATE BEADS
     Route: 065
  3. TOBRAMYCIN. [Suspect]
     Active Substance: TOBRAMYCIN
     Indication: DEVICE RELATED INFECTION
     Dosage: TOBRAMYCIN IMPLANT LOADED IN POLYMETHYL METHACRYLATE CEMENT AND CALCIUM SULFATE BEADS
     Route: 014

REACTIONS (2)
  - Drug level increased [Unknown]
  - Acute kidney injury [Unknown]
